FAERS Safety Report 8936117 (Version 2)
Quarter: 2013Q1

REPORT INFORMATION
  Report Type: Spontaneous
  Country: US (occurrence: None)
  Receive Date: 20121121
  Receipt Date: 20121205
  Transmission Date: 20140127
  Serious: Yes (Other)
  Sender: FDA-Public Use
  Company Number: PI-08382

PATIENT
  Age: 10 Month
  Sex: Male

DRUGS (2)
  1. CHLORAPREP [Suspect]
     Indication: PREOPERATIVE CARE
     Route: 061
     Dates: start: 20121109
  2. CHLORAPREP [Suspect]
     Indication: THERAPEUTIC SKIN CARE TOPICAL
     Route: 061
     Dates: start: 20121109

REACTIONS (2)
  - Application site burn [None]
  - Application site vesicles [None]
